FAERS Safety Report 4480398-9 (Version None)
Quarter: 2004Q4

REPORT INFORMATION
  Report Type: 
  Country: None (occurrence: None)
  Receive Date: 20041018
  Receipt Date: 20040930
  Transmission Date: 20050328
  Serious: Yes (Hospitalization, Other)
  Sender: FDA-Public Use
  Company Number: 2004068910

PATIENT
  Sex: Male

DRUGS (5)
  1. ZOLOFT [Suspect]
     Indication: OBSESSIVE-COMPULSIVE DISORDER
     Dosage: 250 MG, ORAL
     Route: 048
  2. LORAZEPAM [Suspect]
     Indication: OBSESSIVE-COMPULSIVE DISORDER
     Dosage: 3 MG,ORAL
     Route: 048
  3. QUETIAPINE (QUETIAPINE) [Suspect]
     Indication: OBSESSIVE-COMPULSIVE DISORDER
     Dosage: 50 MG,ORAL
     Route: 048
  4. LORAZEPAM [Concomitant]
  5. QUETIAPINE (QUETIAPINE) [Concomitant]

REACTIONS (5)
  - CEREBRAL DISORDER [None]
  - DEMYELINATION [None]
  - EPILEPSY [None]
  - MULTIPLE SCLEROSIS [None]
  - PRESCRIBED OVERDOSE [None]
